FAERS Safety Report 6529976-3 (Version None)
Quarter: 2010Q1

REPORT INFORMATION
  Report Type: 
  Country: None (occurrence: None)
  Receive Date: 20100104
  Receipt Date: 20091222
  Transmission Date: 20100710
  Serious: Yes (Other)
  Sender: FDA-Public Use
  Company Number: 003538

PATIENT
  Sex: Female

DRUGS (2)
  1. LEVETIRACETAM [Suspect]
     Dosage: 750 MG BID ORAL, 1000 MG BID ORAL
     Route: 048
     Dates: start: 20090701, end: 20091221
  2. LEVETIRACETAM [Suspect]
     Dosage: 750 MG BID ORAL, 1000 MG BID ORAL
     Route: 048
     Dates: start: 20091222

REACTIONS (3)
  - CONVERSION DISORDER [None]
  - DRUG EXPOSURE DURING PREGNANCY [None]
  - PREGNANCY [None]
